FAERS Safety Report 6536950-X (Version None)
Quarter: 2010Q1

REPORT INFORMATION
  Report Type: 
  Country: None (occurrence: None)
  Receive Date: 20100113
  Receipt Date: 20100106
  Transmission Date: 20100710
  Serious: Yes (Other)
  Sender: FDA-Public Use
  Company Number: US-GENENTECH-296676

PATIENT
  Age: 64 Year
  Sex: Female
  Weight: 60.771 kg

DRUGS (2)
  1. RITUXAN [Suspect]
     Indication: RHEUMATOID ARTHRITIS
     Dosage: 1000 MG, UNK
     Route: 042
  2. MEDROL [Concomitant]
     Indication: PREMEDICATION

REACTIONS (2)
  - CHEST PAIN [None]
  - PANCREATITIS [None]
